FAERS Safety Report 6456376-7 (Version None)
Quarter: 2009Q4

REPORT INFORMATION
  Report Type: 
  Country: None (occurrence: None)
  Receive Date: 20091125
  Receipt Date: 20091118
  Transmission Date: 20100525
  Serious: Yes (Other)
  Sender: FDA-Public Use
  Company Number: CA-JNJFOC-20090805923

PATIENT
  Sex: Female
  Weight: 74.84 kg

DRUGS (5)
  1. STELARA [Suspect]
     Indication: PSORIASIS
     Route: 058
     Dates: start: 20090805
  2. ACTONEL [Concomitant]
     Indication: OSTEOPOROSIS
  3. EFFEXOR [Concomitant]
     Indication: DEPRESSION
  4. XANAX [Concomitant]
     Indication: INSOMNIA
  5. CALCIUM AND VITAMIN D [Concomitant]
     Indication: OSTEOPOROSIS

REACTIONS (1)
  - PNEUMONIA [None]
